FAERS Safety Report 15438271 (Version 1)
Quarter: 2018Q3

REPORT INFORMATION
  Report Type: Spontaneous
  Country: NL (occurrence: NL)
  Receive Date: 20180928
  Receipt Date: 20180928
  Transmission Date: 20181010
  Serious: Yes (Hospitalization, Other)
  Sender: FDA-Public Use
  Company Number: NL-LUPIN PHARMACEUTICALS INC.-2018-06717

PATIENT
  Age: 29 Year
  Sex: Female

DRUGS (1)
  1. QUETIAPINE 300 MG TABLETS [Suspect]
     Active Substance: QUETIAPINE FUMARATE
     Indication: PRODUCT USED FOR UNKNOWN INDICATION
     Dosage: 8 DF, QD
     Route: 048

REACTIONS (8)
  - Intentional overdose [Unknown]
  - Sinus tachycardia [Unknown]
  - Drug level increased [Unknown]
  - Poisoning [Unknown]
  - Psychomotor hyperactivity [Unknown]
  - Delirium [Recovered/Resolved]
  - Depressed level of consciousness [Unknown]
  - Hallucination, visual [Unknown]
